FAERS Safety Report 5487934-4 (Version None)
Quarter: 2007Q4

REPORT INFORMATION
  Report Type: 
  Country: None (occurrence: None)
  Receive Date: 20071012
  Receipt Date: 20071012
  Transmission Date: 20080405
  Serious: Yes (Other)
  Sender: FDA-Public Use
  Company Number: None

PATIENT
  Age: 59 Year
  Sex: Female
  Weight: 77.5651 kg

DRUGS (3)
  1. ACTONEL [Suspect]
     Indication: POSTMENOPAUSE
     Dosage: 35MG  1/WEEK  PO
     Route: 048
     Dates: start: 20071001, end: 20071001
  2. ACTONEL [Suspect]
     Indication: PROPHYLAXIS
     Dosage: 35MG  1/WEEK  PO
     Route: 048
     Dates: start: 20071001, end: 20071001
  3. ACTONEL [Suspect]
     Indication: RESORPTION BONE INCREASED
     Dosage: 35MG  1/WEEK  PO
     Route: 048
     Dates: start: 20071001, end: 20071001

REACTIONS (17)
  - ABDOMINAL PAIN [None]
  - ABDOMINAL PAIN LOWER [None]
  - ABDOMINAL PAIN UPPER [None]
  - ARTHRALGIA [None]
  - ASTHMA [None]
  - BACK PAIN [None]
  - BLADDER PAIN [None]
  - COUGH [None]
  - DYSPNOEA [None]
  - FLANK PAIN [None]
  - GAIT DISTURBANCE [None]
  - GASTROOESOPHAGEAL REFLUX DISEASE [None]
  - INFLUENZA LIKE ILLNESS [None]
  - MOVEMENT DISORDER [None]
  - MUSCULOSKELETAL CHEST PAIN [None]
  - PAIN [None]
  - PAIN IN EXTREMITY [None]
